FAERS Safety Report 9646482 (Version 2)
Quarter: 2013Q4

REPORT INFORMATION
  Report Type: Spontaneous
  Country: KR (occurrence: KR)
  Receive Date: 20131025
  Receipt Date: 20131205
  Transmission Date: 20140711
  Serious: Yes (Hospitalization)
  Sender: FDA-Public Use
  Company Number: KR-ABBVIE-13P-090-1159719-00

PATIENT
  Age: 64 Year
  Sex: Female
  Weight: 60 kg

DRUGS (3)
  1. HUMIRA [Suspect]
     Indication: RHEUMATOID ARTHRITIS
     Route: 058
     Dates: start: 20131007
  2. UNKNOWN MEDICATION [Concomitant]
     Indication: RHEUMATOID ARTHRITIS
  3. STEROID [Concomitant]
     Indication: RHEUMATOID ARTHRITIS
     Route: 048

REACTIONS (5)
  - Pain [Recovered/Resolved]
  - Inflammatory marker increased [Recovered/Resolved]
  - Diarrhoea [Recovered/Resolved]
  - Decreased appetite [Recovered/Resolved]
  - Fatigue [Recovered/Resolved]
